FAERS Safety Report 8264930-5 (Version None)
Quarter: 2012Q2

REPORT INFORMATION
  Report Type: 
  Country: None (occurrence: None)
  Receive Date: 20120403
  Receipt Date: 20120319
  Transmission Date: 20120825
  Serious: Yes (Hospitalization, Disabling)
  Sender: FDA-Public Use
  Company Number: TPA2012A01659

PATIENT
  Age: 75 Year
  Sex: Male

DRUGS (8)
  1. PHYSIOTENS (MOXONIDINE) [Suspect]
     Indication: PRODUCT USED FOR UNKNOWN INDICATION
     Dosage: 1 DF (1 DF, 2 IN 1 D), ORAL
     Route: 048
     Dates: start: 20120101
  2. ADENURIC (FEBUXOSTAT) [Suspect]
     Indication: PRODUCT USED FOR UNKNOWN INDICATION
     Dosage: 120 MG (120 MG, 1 IN 1 D), ORAL
     Dates: end: 20120101
  3. RASILEX (ALISKIREN) [Suspect]
     Indication: HYPERTENSION
     Dosage: 300 MG (300 MG, 1 IN 1 D), ORAL
     Route: 048
     Dates: end: 20120112
  4. OMACOR (EICOSAPENTAENOIC ACID, DOCOSAHEXANOIC ACID) [Concomitant]
  5. PLAVIS (CLOPIDOGREL SULFATE) [Concomitant]
  6. ALFUZOSIN HYDROCHLORIDE [Concomitant]
  7. HYTACAND (HYDROCHLOROTHIAZIDE, CANDESARTAN CILEXETIL) [Suspect]
     Indication: PRODUCT USED FOR UNKNOWN INDICATION
     Dosage: 16 MG/12.5 MG (1 IN 1 D), ORAL
     Route: 048
  8. CRESTOR [Concomitant]

REACTIONS (9)
  - DILATATION ATRIAL [None]
  - CAROTID ARTERY OCCLUSION [None]
  - RETINAL ARTERY OCCLUSION [None]
  - BLINDNESS UNILATERAL [None]
  - MACULAR OEDEMA [None]
  - SINUS BRADYCARDIA [None]
  - BLOOD PRESSURE DIASTOLIC DECREASED [None]
  - VENTRICULAR EXTRASYSTOLES [None]
  - RETINAL HAEMORRHAGE [None]
